FAERS Safety Report 9813903 (Version 1)
Quarter: 2014Q1

REPORT INFORMATION
  Report Type: Spontaneous
  Country: US (occurrence: US)
  Receive Date: 20140113
  Receipt Date: 20140113
  Transmission Date: 20141002
  Serious: Yes (Death)
  Sender: FDA-Public Use
  Company Number: US-PFIZER INC-2014006130

PATIENT
  Age: 58 Year
  Sex: Male

DRUGS (6)
  1. SILDENAFIL CITRATE [Suspect]
     Dosage: UNK
  2. ALPRAZOLAM [Suspect]
     Dosage: UNK
  3. TRANDOLAPRIL/VERAPAMIL [Suspect]
     Dosage: UNK
  4. FENOFIBRIC ACID [Suspect]
     Dosage: UNK
  5. NAPROXEN [Suspect]
     Dosage: UNK
  6. OMEPRAZOLE [Suspect]
     Dosage: UNK

REACTIONS (1)
  - Completed suicide [Fatal]
